FAERS Safety Report 6656823-1 (Version None)
Quarter: 2010Q1

REPORT INFORMATION
  Report Type: 
  Country: None (occurrence: None)
  Receive Date: 20100325
  Receipt Date: 20100316
  Transmission Date: 20100710
  Serious: Yes (Death, Hospitalization)
  Sender: FDA-Public Use
  Company Number: 2009AC000079

PATIENT
  Age: 29 Year
  Sex: Female
  Weight: 125 kg

DRUGS (112)
  1. DIGOXIN [Suspect]
     Dosage: 0.125 MG; QD; PO
     Route: 048
  2. DIGOXIN [Suspect]
     Dosage: 0.25 MG; QD; PO
     Route: 048
     Dates: start: 20070901
  3. DIGOXIN [Suspect]
     Dosage: 0.25 MG;QD;PO
     Route: 048
     Dates: start: 19970129, end: 19970101
  4. DIGOXIN [Suspect]
     Dosage: 250 MG;QD;PO
     Route: 048
     Dates: start: 20071001
  5. DIGOXIN [Suspect]
     Dosage: 0.125 MG;QD;PO
     Route: 048
     Dates: start: 20040701, end: 20060801
  6. DIGOXIN [Suspect]
     Dosage: 0.125 MG;QD;PO
     Route: 048
     Dates: start: 20080201, end: 20080901
  7. DIGOXIN [Suspect]
     Dosage: .25 MG;QD;PO
     Route: 048
     Dates: start: 19961010
  8. LASIX [Concomitant]
  9. K-DUR [Concomitant]
  10. SPIRONOLACTONE [Concomitant]
  11. TEQUIN [Concomitant]
  12. ROBITUSSIN [Concomitant]
  13. COREG [Concomitant]
  14. ZAROXOLYN [Concomitant]
  15. LIPITOR [Concomitant]
  16. METOPROLOL TARTRATE [Concomitant]
  17. LISINOPRIL [Concomitant]
  18. KAY CIEL DURA-TABS [Concomitant]
  19. PRINIVIL [Concomitant]
  20. CARVEDILOL [Concomitant]
  21. METOLAZONE [Concomitant]
  22. POTASSIUM CHLORIDE [Concomitant]
  23. ZOLPIDEM [Concomitant]
  24. DIPYRIDAMOLE [Concomitant]
  25. MAG OXIDE [Concomitant]
  26. PROPA-N/APAP [Concomitant]
  27. RAMIPRIL [Concomitant]
  28. COUMADIN [Concomitant]
  29. LISINOPRIL [Concomitant]
  30. LASIX [Concomitant]
  31. KLOR-CON [Concomitant]
  32. COUMADIN [Concomitant]
  33. CLAFORAN SHOT [Concomitant]
  34. KENALOG [Concomitant]
  35. COMBIVENT [Concomitant]
  36. POTASSIUM [Concomitant]
  37. MULTI-VITAMINS [Concomitant]
  38. MERIDIA [Concomitant]
  39. CLOMID [Concomitant]
  40. XENICAL [Concomitant]
  41. AMIODARONE HCL [Concomitant]
  42. PRIMACOR [Concomitant]
  43. ASPIRIN [Concomitant]
  44. ALTACE [Concomitant]
  45. PROVERA [Concomitant]
  46. PROTONIX [Concomitant]
  47. VICODIN [Concomitant]
  48. TOPROL-XL [Concomitant]
  49. CEFUROXIME [Concomitant]
  50. NAPROXEN [Concomitant]
  51. HYDROCODONE BITARTRATE [Concomitant]
  52. CYCLOBENZAPRINE [Concomitant]
  53. SKELAXIN [Concomitant]
  54. ALLEGRA [Concomitant]
  55. ZITHROMAX [Concomitant]
  56. AMOXICILLIN [Concomitant]
  57. LEVAQUIN [Concomitant]
  58. MUCINEX [Concomitant]
  59. NASONEX [Concomitant]
  60. NITROGLYCERIN [Concomitant]
  61. AUGMENTIN '125' [Concomitant]
  62. LORTAB [Concomitant]
  63. URSODEOXYCHOLIC ACID [Concomitant]
  64. BENADRYL [Concomitant]
  65. PHENERGAN [Concomitant]
  66. HEPARIN [Concomitant]
  67. DEMEROL [Concomitant]
  68. NATRECOR [Concomitant]
  69. AMBIEN [Concomitant]
  70. XANEX [Concomitant]
  71. NESIRITIDE [Concomitant]
  72. ATIVAN [Concomitant]
  73. ZOFRAN [Concomitant]
  74. LOVENOX [Concomitant]
  75. ALBUTEROL [Concomitant]
  76. VICONDIN [Concomitant]
  77. HYDROCHLOROTHIAZIDE [Concomitant]
  78. BUMETANIDE [Concomitant]
  79. INSULIN [Concomitant]
  80. CEFEPIME [Concomitant]
  81. FLUOCONAZOLE [Concomitant]
  82. PERSANTINE [Concomitant]
  83. COLACE [Concomitant]
  84. INSPRA [Concomitant]
  85. TORSEMIDE [Concomitant]
  86. EPLERONONE [Concomitant]
  87. VASOPRESSIN [Concomitant]
  88. ISUPREL [Concomitant]
  89. EPINEPHRINE [Concomitant]
  90. LEVOPHED [Concomitant]
  91. SEROQUEL [Concomitant]
  92. FENTANYL-100 [Concomitant]
  93. LACTULOSE [Concomitant]
  94. VERSED [Concomitant]
  95. VIAGRA [Concomitant]
  96. DILAUDID [Concomitant]
  97. FOLIC ACID [Concomitant]
  98. GLUTAMINE [Concomitant]
  99. ESCITALOPRAN [Concomitant]
  100. ARANESP [Concomitant]
  101. ONDANSETRON ACETAMINOPHEN [Concomitant]
  102. VANCOMYCIN [Concomitant]
  103. MORPHINE [Concomitant]
  104. PREGASALIN [Concomitant]
  105. LIDODERM [Concomitant]
  106. ZOFRAN [Concomitant]
  107. KLONOPIN [Concomitant]
  108. CLONIDINE [Concomitant]
  109. MONOPRIL [Concomitant]
  110. VASOTEC [Concomitant]
  111. POTASSIUM [Concomitant]
  112. MAGNESIUM OXIDE [Concomitant]

REACTIONS (74)
  - ABDOMINAL PAIN UPPER [None]
  - ARTERIOSCLEROSIS [None]
  - ATELECTASIS [None]
  - ATRIAL FIBRILLATION [None]
  - BACK PAIN [None]
  - BLOOD CHOLESTEROL INCREASED [None]
  - BLOOD POTASSIUM INCREASED [None]
  - BRONCHITIS [None]
  - CARDIAC FAILURE [None]
  - CARDIAC FAILURE CONGESTIVE [None]
  - CARDIOGENIC SHOCK [None]
  - CARDIOMEGALY [None]
  - CARDIOMYOPATHY [None]
  - CEREBRAL ISCHAEMIA [None]
  - CHEST DISCOMFORT [None]
  - CHOLECYSTITIS [None]
  - CONDITION AGGRAVATED [None]
  - DEVICE FAILURE [None]
  - DEVICE RELATED INFECTION [None]
  - DILATATION VENTRICULAR [None]
  - ECONOMIC PROBLEM [None]
  - ENDOMETRIAL CANCER [None]
  - FISTULA [None]
  - GANGRENE [None]
  - GENERAL PHYSICAL HEALTH DETERIORATION [None]
  - HAEMORRHAGE [None]
  - HAIR GROWTH ABNORMAL [None]
  - HEADACHE [None]
  - HEART TRANSPLANT [None]
  - HYPOXIA [None]
  - INFERTILITY [None]
  - INFLUENZA LIKE ILLNESS [None]
  - INSOMNIA [None]
  - INTRACARDIAC THROMBUS [None]
  - LEFT VENTRICULAR DYSFUNCTION [None]
  - LEG AMPUTATION [None]
  - LOBAR PNEUMONIA [None]
  - MASS [None]
  - MEDIASTINITIS [None]
  - MENSTRUATION IRREGULAR [None]
  - MULTI-ORGAN FAILURE [None]
  - MULTIPLE INJURIES [None]
  - NAUSEA [None]
  - ORTHOPNOEA [None]
  - PALPITATIONS [None]
  - PERICARDIAL EFFUSION [None]
  - PERIPHERAL VASCULAR DISORDER [None]
  - PLEURAL EFFUSION [None]
  - PNEUMONIA [None]
  - POLLAKIURIA [None]
  - POLYCYSTIC OVARIES [None]
  - POSTOPERATIVE WOUND INFECTION [None]
  - POSTPARTUM DISORDER [None]
  - PRESYNCOPE [None]
  - PULMONARY CONGESTION [None]
  - PULMONARY HYPERTENSION [None]
  - PULMONARY OEDEMA [None]
  - RENAL CANCER [None]
  - RENAL FAILURE [None]
  - RIGHT ATRIAL DILATATION [None]
  - SINUS TACHYCARDIA [None]
  - SINUSITIS [None]
  - SLEEP APNOEA SYNDROME [None]
  - SUBDURAL HAEMORRHAGE [None]
  - SUPRAVENTRICULAR TACHYCARDIA [None]
  - TREATMENT NONCOMPLIANCE [None]
  - TUBERCULIN TEST POSITIVE [None]
  - UPPER RESPIRATORY TRACT INFECTION [None]
  - URINARY INCONTINENCE [None]
  - URINARY TRACT INFECTION [None]
  - UTERINE CANCER [None]
  - VENTRICULAR HYPOKINESIA [None]
  - VOMITING [None]
  - WOUND INFECTION [None]
